FAERS Safety Report 13049856 (Version 1)
Quarter: 2016Q4

REPORT INFORMATION
  Report Type: Report from Study
  Country: CN (occurrence: CN)
  Receive Date: 20161221
  Receipt Date: 20161221
  Transmission Date: 20170207
  Serious: Yes (Hospitalization, Other)
  Sender: FDA-Public Use
  Company Number: PHHY2016CN146514

PATIENT
  Age: 54 Year
  Sex: Male
  Weight: 78 kg

DRUGS (35)
  1. ALPROSTADIL. [Concomitant]
     Active Substance: ALPROSTADIL
     Indication: CARDIOVASCULAR DISORDER
     Dosage: 10 UG, BID
     Route: 042
     Dates: start: 20160826, end: 20160909
  2. GLUTATHION [Concomitant]
     Indication: PROPHYLAXIS
     Dosage: I1.8 G, QD
     Route: 042
     Dates: start: 20160826, end: 20160905
  3. MEGLUMINE ADENOSINE CYCLOPHOSPHATE [Concomitant]
     Indication: NUTRITIONAL SUPPLEMENTATION
     Dosage: 90 MG, QD
     Route: 042
     Dates: start: 20160826, end: 20160905
  4. SPIRONOLACTONE. [Concomitant]
     Active Substance: SPIRONOLACTONE
     Indication: BLOOD POTASSIUM INCREASED
     Dosage: 20 MG, BID
     Route: 048
     Dates: start: 20160830, end: 20160901
  5. AMLODIPINE BESYLATE AND BENAZEPRIL HYDROCHLOR [Concomitant]
     Indication: BLOOD PRESSURE INCREASED
     Dosage: 12.5 MG, BID
     Route: 048
     Dates: start: 20160827, end: 20160926
  6. MYFORTIC [Suspect]
     Active Substance: MYCOPHENOLATE SODIUM
     Indication: RENAL TRANSPLANT
     Dosage: 720 MG, BID
     Route: 048
     Dates: start: 20160826, end: 20160922
  7. PREDNISONE. [Concomitant]
     Active Substance: PREDNISONE
     Dosage: 10 MG, QD
     Route: 065
     Dates: start: 20160917, end: 20160922
  8. PREDNISONE. [Concomitant]
     Active Substance: PREDNISONE
     Dosage: 5 MG, QD
     Route: 065
     Dates: start: 20160923
  9. AMBROXOL HYDROCHLORIDE [Concomitant]
     Active Substance: AMBROXOL HYDROCHLORIDE
     Indication: PRODUCTIVE COUGH
     Dosage: 30 MG, BID
     Route: 055
     Dates: start: 20160826, end: 20160908
  10. HEPARIN SODIUM. [Concomitant]
     Active Substance: HEPARIN SODIUM
     Indication: ANTICOAGULANT THERAPY
     Dosage: 5000 IU, QD
     Route: 042
     Dates: start: 20160909, end: 20160912
  11. CICLOSPORIN [Suspect]
     Active Substance: CYCLOSPORINE
     Dosage: 375 MG, QD
     Route: 065
     Dates: start: 20160927
  12. AMLODIPIN BESYLATE AND BENAZEPRIL HYDROCHLORI [Concomitant]
     Active Substance: AMLODIPINE BESYLATE\BENAZEPRIL HYDROCHLORIDE
     Indication: BLOOD PRESSURE INCREASED
     Dosage: 12.5 MG, BID
     Route: 048
     Dates: start: 20160827, end: 20160926
  13. AMBROXOL HYDROCHLORIDE [Concomitant]
     Active Substance: AMBROXOL HYDROCHLORIDE
     Indication: COUGH
     Dosage: 30 MG, BID
     Route: 042
     Dates: start: 20160826, end: 20160905
  14. GANCICLOVIR. [Concomitant]
     Active Substance: GANCICLOVIR
     Indication: INFECTION PROPHYLAXIS
     Dosage: 250 MG, QD
     Route: 042
     Dates: start: 20160909, end: 20160923
  15. HUMAN SERUM ALBUMIN [Concomitant]
     Active Substance: ALBUMIN HUMAN
     Indication: HYPOPROTEINAEMIA
     Dosage: 20 G, QD
     Route: 042
     Dates: start: 20160827, end: 20160828
  16. PLASMA [Concomitant]
     Active Substance: HUMAN PLASMA
     Indication: ANAEMIA
     Dosage: 200 ML, QD
     Route: 042
     Dates: start: 20160826, end: 20160827
  17. GLUTATHIONE [Concomitant]
     Active Substance: GLUTATHIONE
     Indication: LIVER DISORDER
     Dosage: 1.8 G, QD
     Route: 042
     Dates: start: 20160826, end: 20160826
  18. CICLOSPORIN [Suspect]
     Active Substance: CYCLOSPORINE
     Indication: IMMUNOSUPPRESSANT DRUG THERAPY
     Dosage: 400 MG, QD
     Route: 065
     Dates: start: 20160827, end: 20160831
  19. SPIRONOLACTONE. [Concomitant]
     Active Substance: SPIRONOLACTONE
     Indication: POLYURIA
  20. ISOSORBIDE MONONITRATE. [Concomitant]
     Active Substance: ISOSORBIDE MONONITRATE
     Indication: NUTRITIONAL SUPPLEMENTATION
     Dosage: 20 MG, BID
     Route: 048
     Dates: start: 20160917
  21. BASILIXIMAB [Suspect]
     Active Substance: BASILIXIMAB
     Indication: IMMUNOSUPPRESSANT DRUG THERAPY
     Dosage: 20 MG, QD
     Route: 065
     Dates: start: 20160826, end: 20160826
  22. CICLOSPORIN [Suspect]
     Active Substance: CYCLOSPORINE
     Dosage: 425 MG, QD
     Route: 065
     Dates: start: 20160901, end: 20160926
  23. HUMAN SERUM ALBUMIN [Concomitant]
     Active Substance: ALBUMIN HUMAN
     Dosage: 20 G, QD
     Route: 042
     Dates: start: 20160829, end: 20160830
  24. MYFORTIC [Suspect]
     Active Substance: MYCOPHENOLATE SODIUM
     Dosage: 540 MG, BID
     Route: 048
     Dates: start: 20160923
  25. METHYLPREDNISOLONE. [Suspect]
     Active Substance: METHYLPREDNISOLONE
     Indication: IMMUNOSUPPRESSANT DRUG THERAPY
     Dosage: 500 MG, QD
     Route: 065
     Dates: start: 20160826, end: 20160830
  26. PREDNISONE. [Concomitant]
     Active Substance: PREDNISONE
     Dosage: 15 MG, QD
     Route: 065
     Dates: start: 20160905, end: 20160916
  27. COENZYME COMPLEX [Concomitant]
     Active Substance: UNSPECIFIED INGREDIENT
     Indication: NUTRITIONAL SUPPLEMENTATION
     Dosage: 400 IU, QD
     Route: 042
     Dates: start: 20160826, end: 20160905
  28. SODIUM BICARBONATE. [Concomitant]
     Active Substance: SODIUM BICARBONATE
     Indication: ACID BASE BALANCE ABNORMAL
     Dosage: 1 G, TID
     Route: 048
     Dates: start: 20160925
  29. PIPERACILLIN AND TAZOBACTAM [Concomitant]
     Active Substance: PIPERACILLIN SODIUM\TAZOBACTAM SODIUM
     Indication: INFECTION PROPHYLAXIS
     Dosage: 2.25 G, BID
     Route: 042
     Dates: start: 20160826, end: 20160908
  30. PIPERACILINA + TAZOBACTAM [Concomitant]
     Active Substance: PIPERACILLIN SODIUM\TAZOBACTAM SODIUM
     Indication: INFECTION PROPHYLAXIS
     Dosage: 2.25 G, BID
     Route: 042
     Dates: start: 20160826, end: 20160908
  31. PREDNISONE. [Concomitant]
     Active Substance: PREDNISONE
     Indication: PROPHYLAXIS AGAINST TRANSPLANT REJECTION
     Dosage: 20 MG, QD
     Route: 065
     Dates: start: 20160829, end: 20160904
  32. AMBROXOL HYDROCHLORIDE [Concomitant]
     Active Substance: AMBROXOL HYDROCHLORIDE
     Dosage: 30 MG, BID
     Route: 055
     Dates: start: 20160914, end: 20160929
  33. BICYCLOL [Concomitant]
     Active Substance: BICYCLOL
     Indication: PROPHYLAXIS
     Dosage: 25 MG, TID
     Route: 048
     Dates: start: 20160905
  34. RECOMBINANT HUMAN ERYTHROPOIETIN [Concomitant]
     Active Substance: ERYTHROPOIETIN
     Indication: ANAEMIA
     Dosage: UNK UNK, BIW
     Route: 042
  35. DIOVAN [Concomitant]
     Active Substance: VALSARTAN
     Indication: BLOOD PRESSURE INCREASED
     Dosage: 80 MG, BID
     Route: 048
     Dates: start: 20160831

REACTIONS (8)
  - Blood creatinine increased [Recovered/Resolved]
  - Hyperlipidaemia [Unknown]
  - Urinary tract infection [Recovering/Resolving]
  - Neutrophil count increased [Unknown]
  - Blood urine present [Unknown]
  - BK virus infection [Recovering/Resolving]
  - Haemoglobin decreased [Unknown]
  - Lymphocyte count decreased [Unknown]

NARRATIVE: CASE EVENT DATE: 20160910
